FAERS Safety Report 4333078-4 (Version None)
Quarter: 2004Q1

REPORT INFORMATION
  Report Type: 
  Country: None (occurrence: None)
  Receive Date: 20040330
  Receipt Date: 20030317
  Transmission Date: 20041129
  Serious: Yes (Hospitalization)
  Sender: FDA-Public Use
  Company Number: 04P-056-0247285-00

PATIENT
  Age: 37 Year
  Sex: Male

DRUGS (7)
  1. DEPAKOTE [Suspect]
     Dosage: 250 MG, 10 IN 1 D, PER ORAL
     Route: 048
     Dates: start: 20031020, end: 20031026
  2. LEVOMEPROMAZINE [Suspect]
     Indication: PSYCHOTIC DISORDER
     Dosage: 50 MG, 1 IN 1 D, PER ORAL
     Route: 048
     Dates: start: 20030101, end: 20031026
  3. ZUCLOPENTHIXOL DECANOATE [Suspect]
     Indication: PSYCHOTIC DISORDER
     Dosage: 1 DOSAGE FORMS, 1 IN 2 M, INTRAMUSCULAR
     Route: 030
     Dates: start: 20030101, end: 20031026
  4. HALOPERIDOL [Concomitant]
  5. CARBAMAZEPINE [Concomitant]
  6. ALIMEMAZINE TARTRATE [Concomitant]
  7. CYAMEMAZINE [Concomitant]

REACTIONS (4)
  - ALANINE AMINOTRANSFERASE INCREASED [None]
  - ASPARTATE AMINOTRANSFERASE INCREASED [None]
  - RHABDOMYOLYSIS [None]
  - SOMNOLENCE [None]
